FAERS Safety Report 9551939 (Version 1)
Quarter: 2013Q2

REPORT INFORMATION
  Report Type: Spontaneous
  Country: US (occurrence: None)
  Receive Date: 20130627
  Receipt Date: 20130627
  Transmission Date: 20140414
  Serious: No
  Sender: FDA-Public Use
  Company Number: 1000045563

PATIENT
  Age: 67 Year
  Sex: Female

DRUGS (4)
  1. LINZESS (LINACLOTIDE) (145 MICROGRAM, CAPSULES) [Suspect]
     Indication: CONSTIPATION
     Dosage: 145 MCG, 1 IN 1 D
     Route: 048
     Dates: start: 201305, end: 201305
  2. EVISTA [Concomitant]
  3. LOSARTAN [Concomitant]
  4. POTASSIUM [Concomitant]

REACTIONS (2)
  - Abdominal distension [None]
  - Abdominal pain upper [None]
